FAERS Safety Report 19997474 (Version 1)
Quarter: 2021Q4

REPORT INFORMATION
  Report Type: Report from Study
  Country: US (occurrence: US)
  Receive Date: 20211026
  Receipt Date: 20211026
  Transmission Date: 20220303
  Serious: No
  Sender: FDA-Public Use
  Company Number: US-NOVARTISTESTPH-NVSC2021US243536

PATIENT
  Sex: Male

DRUGS (1)
  1. RYDAPT [Suspect]
     Active Substance: MIDOSTAURIN
     Indication: Product used for unknown indication
     Dosage: 25 MG, BID 9TAKE 2 CAPSULES (50MG) BY MOUTH TWICE A DAY WITH FOOD)
     Route: 048
     Dates: start: 20210910

REACTIONS (1)
  - Pyrexia [Not Recovered/Not Resolved]
